FAERS Safety Report 7035750-4 (Version None)
Quarter: 2010Q4

REPORT INFORMATION
  Report Type: 
  Country: None (occurrence: None)
  Receive Date: 20101008
  Receipt Date: 20101007
  Transmission Date: 20110411
  Serious: Yes (Death)
  Sender: FDA-Public Use
  Company Number: FR-JNJFOC-20100908670

PATIENT
  Age: 41 Year
  Sex: Male

DRUGS (11)
  1. TOPALGIC [Suspect]
     Indication: INTENTIONAL OVERDOSE
     Route: 065
  2. HEROIN [Suspect]
     Indication: INTENTIONAL OVERDOSE
     Route: 065
  3. COCAINE [Suspect]
     Indication: INTENTIONAL OVERDOSE
     Route: 065
  4. ZOLPIDEM [Suspect]
     Indication: PRODUCT USED FOR UNKNOWN INDICATION
     Route: 065
  5. CODEINE [Suspect]
     Indication: PRODUCT USED FOR UNKNOWN INDICATION
     Route: 065
  6. PARACETAMOL [Concomitant]
     Route: 065
  7. CHLORPHENIRAMINE MALEATE [Concomitant]
     Route: 065
  8. DEXTROPROPOXYPHENE [Concomitant]
     Route: 065
  9. BISOPROLOL [Concomitant]
     Route: 065
  10. PAROXETINE [Concomitant]
     Route: 065
  11. AMLODIPINE [Concomitant]
     Route: 065

REACTIONS (2)
  - ASPHYXIA [None]
  - MULTIPLE DRUG OVERDOSE INTENTIONAL [None]
